FAERS Safety Report 18482938 (Version 1)
Quarter: 2020Q4

REPORT INFORMATION
  Report Type: Spontaneous
  Country: US (occurrence: US)
  Receive Date: 20201109
  Receipt Date: 20201109
  Transmission Date: 20210114
  Serious: No
  Sender: FDA-Public Use
  Company Number: US-FOUNDATIONCONSUMERHC-2020-US-017294

PATIENT
  Age: 26 Year
  Sex: Female
  Weight: 72.12 kg

DRUGS (1)
  1. PLAN B ONE-STEP [Suspect]
     Active Substance: LEVONORGESTREL
     Indication: POST COITAL CONTRACEPTION
     Dosage: 1.5MG X3 DOSES
     Route: 048
     Dates: start: 201502, end: 20200823

REACTIONS (18)
  - Back pain [Not Recovered/Not Resolved]
  - Fatigue [Recovered/Resolved]
  - Uterine spasm [Not Recovered/Not Resolved]
  - Dizziness [Recovered/Resolved]
  - Dysmenorrhoea [Recovered/Resolved]
  - Breast tenderness [Not Recovered/Not Resolved]
  - Abdominal pain [Not Recovered/Not Resolved]
  - Fluid retention [Not Recovered/Not Resolved]
  - Fatigue [Not Recovered/Not Resolved]
  - Constipation [Not Recovered/Not Resolved]
  - Vaginal haemorrhage [Recovered/Resolved]
  - Nausea [Not Recovered/Not Resolved]
  - Hyperhidrosis [Recovered/Resolved]
  - Menstruation irregular [Recovered/Resolved]
  - Food craving [Recovered/Resolved]
  - Abdominal distension [Not Recovered/Not Resolved]
  - Amenorrhoea [Recovered/Resolved]
  - Mental disorder [Not Recovered/Not Resolved]

NARRATIVE: CASE EVENT DATE: 2015
